FAERS Safety Report 25927607 (Version 2)
Quarter: 2025Q4

REPORT INFORMATION
  Report Type: Report from Study
  Country: US (occurrence: US)
  Receive Date: 20251016
  Receipt Date: 20251129
  Transmission Date: 20260117
  Serious: Yes (Other)
  Sender: JOHNSON AND JOHNSON
  Company Number: US-JNJFOC-20251013798

PATIENT
  Sex: Female

DRUGS (6)
  1. SPRAVATO [Suspect]
     Active Substance: ESKETAMINE
     Indication: Depression
     Dosage: ?56 MG, 1 TOTAL DOSES?, ALSO CONFLICTINGLY REPORTED AS 21-JUL-2023
     Route: 045
     Dates: start: 20240812, end: 20240812
  2. SPRAVATO [Suspect]
     Active Substance: ESKETAMINE
     Dosage: ?84 MG, 37 TOTAL DOSES?
     Route: 045
     Dates: start: 20240815, end: 20250930
  3. SPRAVATO [Suspect]
     Active Substance: ESKETAMINE
     Dosage: ?UNSPECIFIED DOSE, 1 TOTAL DOSE?, RECENT DOSE
     Route: 045
     Dates: end: 20251028
  4. ALPRAZOLAM [Concomitant]
     Active Substance: ALPRAZOLAM
     Indication: Mast cell activation syndrome
     Dates: start: 1995
  5. HYDROXYZINE [Concomitant]
     Active Substance: HYDROXYZINE HYDROCHLORIDE
     Indication: Mast cell activation syndrome
     Dates: start: 2020
  6. AZELASTINE [Concomitant]
     Active Substance: AZELASTINE
     Indication: Mast cell activation syndrome
     Dates: start: 2023

REACTIONS (2)
  - Nephrolithiasis [Unknown]
  - Kidney infection [Unknown]
